FAERS Safety Report 10496329 (Version 2)
Quarter: 2014Q4

REPORT INFORMATION
  Report Type: Spontaneous
  Country: DE (occurrence: DE)
  Receive Date: 20141003
  Receipt Date: 20141003
  Transmission Date: 20150528
  Serious: Yes (Other)
  Sender: FDA-Public Use
  Company Number: DE-BMSGILMSD-2014-0115927

PATIENT
  Age: 28 Year
  Sex: Male
  Weight: 75 kg

DRUGS (2)
  1. ATRIPLA [Suspect]
     Active Substance: EFAVIRENZ\EMTRICITABINE\TENOFOVIR DISOPROXIL FUMARATE
     Indication: HIV INFECTION
     Dosage: 1 DF, QD
     Route: 048
     Dates: start: 200803
  2. KREON                              /00014701/ [Concomitant]
     Active Substance: PANCRELIPASE
     Dosage: UNK
     Route: 048
     Dates: start: 20140808

REACTIONS (4)
  - Anxiety [Unknown]
  - Pancreatic insufficiency [Unknown]
  - Diarrhoea [Unknown]
  - Faecal elastase concentration decreased [Unknown]

NARRATIVE: CASE EVENT DATE: 2014
